FAERS Safety Report 7034893-9 (Version None)
Quarter: 2010Q4

REPORT INFORMATION
  Report Type: 
  Country: None (occurrence: None)
  Receive Date: 20101008
  Receipt Date: 20100929
  Transmission Date: 20110411
  Serious: No
  Sender: FDA-Public Use
  Company Number: US-PFIZER INC-2010124138

PATIENT

DRUGS (2)
  1. GEODON [Suspect]
     Dosage: UNK
  2. DEPAKOTE [Suspect]
     Dosage: UNK

REACTIONS (1)
  - URINARY INCONTINENCE [None]
